FAERS Safety Report 10019096 (Version 2)
Quarter: 2014Q1

REPORT INFORMATION
  Report Type: Spontaneous
  Country: US (occurrence: US)
  Receive Date: 20140318
  Receipt Date: 20140318
  Transmission Date: 20141002
  Serious: Yes (Other)
  Sender: FDA-Public Use
  Company Number: US-ASTRAZENECA-2014SE11268

PATIENT
  Age: 697 Month
  Sex: Female
  Weight: 68 kg

DRUGS (7)
  1. OMEPRAZOLE [Suspect]
     Indication: GASTRIC DISORDER
     Route: 048
     Dates: start: 2011
  2. AMITRIPTYLINE [Suspect]
     Indication: DEPRESSION
     Dosage: AT NIGHT
     Route: 065
     Dates: start: 2013
  3. AMITRIPTYLINE [Suspect]
     Indication: SLEEP DISORDER
     Dosage: AT NIGHT
     Route: 065
     Dates: start: 2013
  4. NEURONTIN [Concomitant]
     Indication: PAIN
  5. TRAMADOL [Concomitant]
     Indication: INFLAMMATION
  6. PAXIL [Concomitant]
     Indication: DEPRESSION
  7. METHOCARBAMOL [Concomitant]

REACTIONS (10)
  - Cerebrovascular accident [Unknown]
  - Convulsion [Unknown]
  - Fall [Recovered/Resolved]
  - Tooth loss [Recovered/Resolved]
  - Anxiety [Recovered/Resolved]
  - Gait disturbance [Recovered/Resolved]
  - Corneal abrasion [Recovered/Resolved]
  - Laceration [Recovered/Resolved]
  - Adverse event [Unknown]
  - Off label use [Unknown]
